FAERS Safety Report 15494519 (Version 2)
Quarter: 2019Q2

REPORT INFORMATION
  Report Type: Spontaneous
  Country: US (occurrence: US)
  Receive Date: 20181012
  Receipt Date: 20190507
  Transmission Date: 20190711
  Serious: Yes (Other)
  Sender: FDA-Public Use
  Company Number: US-ASTRAZENECA-2018SF30930

PATIENT
  Age: 56 Year
  Sex: Male
  Weight: 43.1 kg

DRUGS (26)
  1. NEXIUM [Suspect]
     Active Substance: ESOMEPRAZOLE MAGNESIUM
     Indication: GASTROOESOPHAGEAL REFLUX DISEASE
     Dosage: GENERIC
     Route: 065
     Dates: start: 201602, end: 201604
  2. PAMIDRONATE [Concomitant]
     Active Substance: PAMIDRONATE DISODIUM
  3. NEXIUM [Suspect]
     Active Substance: ESOMEPRAZOLE MAGNESIUM
     Indication: GASTROOESOPHAGEAL REFLUX DISEASE
     Route: 048
     Dates: start: 20120620, end: 201412
  4. KETOCONAZOLE. [Concomitant]
     Active Substance: KETOCONAZOLE
  5. NEXIUM [Suspect]
     Active Substance: ESOMEPRAZOLE MAGNESIUM
     Indication: GASTROOESOPHAGEAL REFLUX DISEASE
     Route: 048
     Dates: start: 2012, end: 2015
  6. NEXIUM [Suspect]
     Active Substance: ESOMEPRAZOLE MAGNESIUM
     Indication: GASTROOESOPHAGEAL REFLUX DISEASE
     Dosage: GENERIC
     Route: 065
     Dates: start: 201812
  7. GABAPENTIN. [Concomitant]
     Active Substance: GABAPENTIN
  8. LEVAQUIN [Concomitant]
     Active Substance: LEVOFLOXACIN
  9. PLAQUENIL [Concomitant]
     Active Substance: HYDROXYCHLOROQUINE SULFATE
  10. FAMOTIDIN [Concomitant]
     Active Substance: FAMOTIDINE
  11. RANITIDIN [Concomitant]
     Active Substance: RANITIDINE HYDROCHLORIDE
  12. NEXIUM [Suspect]
     Active Substance: ESOMEPRAZOLE MAGNESIUM
     Indication: GASTROOESOPHAGEAL REFLUX DISEASE
     Route: 048
  13. LACTULOSE. [Concomitant]
     Active Substance: LACTULOSE
  14. ONDANSETRON [Concomitant]
     Active Substance: ONDANSETRON
  15. ZELNORM [Concomitant]
     Active Substance: TEGASEROD MALEATE
  16. CARAFATE [Concomitant]
     Active Substance: SUCRALFATE
  17. PRILOSEC [Suspect]
     Active Substance: OMEPRAZOLE MAGNESIUM
     Indication: GASTROOESOPHAGEAL REFLUX DISEASE
     Route: 048
     Dates: start: 1999
  18. LIDODERM [Concomitant]
     Active Substance: LIDOCAINE
  19. CLONAZEPAM. [Concomitant]
     Active Substance: CLONAZEPAM
  20. VIAGRA [Concomitant]
     Active Substance: SILDENAFIL CITRATE
  21. ROXICODONE [Concomitant]
     Active Substance: OXYCODONE HYDROCHLORIDE
  22. CYPROHEPTADINE. [Concomitant]
     Active Substance: CYPROHEPTADINE
  23. FERAHEME [Concomitant]
     Active Substance: FERUMOXYTOL NON-STOICHIOMETRIC MAGNETITE
  24. KETOCONAZOLE. [Concomitant]
     Active Substance: KETOCONAZOLE
  25. DURAGESIC [Concomitant]
     Active Substance: FENTANYL
  26. AMITIZA [Concomitant]
     Active Substance: LUBIPROSTONE

REACTIONS (1)
  - Chronic kidney disease [Not Recovered/Not Resolved]

NARRATIVE: CASE EVENT DATE: 2013
